FAERS Safety Report 15285023 (Version 1)
Quarter: 2018Q3

REPORT INFORMATION
  Report Type: Spontaneous
  Country: CA (occurrence: CA)
  Receive Date: 20180816
  Receipt Date: 20180816
  Transmission Date: 20181010
  Serious: Yes (Hospitalization)
  Sender: FDA-Public Use
  Company Number: CA-PFIZER INC-2018326806

PATIENT
  Age: 55 Year
  Sex: Female

DRUGS (9)
  1. FLORINEF ACETATE [Concomitant]
     Active Substance: FLUDROCORTISONE ACETATE
     Dosage: UNK
  2. CORTEF [Suspect]
     Active Substance: HYDROCORTISONE
     Dosage: 30 MG, UNK (ONCE)
  3. ABILIFY [Interacting]
     Active Substance: ARIPIPRAZOLE
     Dosage: 7.0 MG, 1X/DAY
     Route: 048
  4. ABILIFY [Interacting]
     Active Substance: ARIPIPRAZOLE
     Dosage: 7.0 MG, 1X/DAY
     Route: 048
  5. SYNTHROID [Concomitant]
     Active Substance: LEVOTHYROXINE SODIUM
     Dosage: UNK
  6. CORTEF [Interacting]
     Active Substance: HYDROCORTISONE
     Dosage: 10 MG, 2X/DAY
  7. ABILIFY [Interacting]
     Active Substance: ARIPIPRAZOLE
     Dosage: 5.0 MG, 1X/DAY
     Route: 048
  8. ABILIFY [Interacting]
     Active Substance: ARIPIPRAZOLE
     Indication: DELUSIONAL DISORDER, UNSPECIFIED TYPE
     Dosage: 10.0 MG, 1X/DAY
     Route: 048
  9. CORTEF [Interacting]
     Active Substance: HYDROCORTISONE
     Dosage: 20 MG, 3X/DAY

REACTIONS (3)
  - Cortisol decreased [Recovering/Resolving]
  - Drug interaction [Recovering/Resolving]
  - Therapy change [Recovering/Resolving]
